FAERS Safety Report 9511381 (Version 1)
Quarter: 2013Q1

REPORT INFORMATION
  Report Type: Spontaneous
  Country: US (occurrence: None)
  Receive Date: 20130305
  Receipt Date: 20130305
  Transmission Date: 20140127
  Serious: Yes (Other)
  Sender: FDA-Public Use
  Company Number: 163-21880-12103311

PATIENT
  Age: 75 Year
  Sex: Male
  Weight: 107.05 kg

DRUGS (23)
  1. REVLIMID [Suspect]
     Indication: PLASMA CELL MYELOMA
     Dosage: 25 MG, 21 IN 28 D, PO
     Route: 048
     Dates: start: 20110730
  2. AMBIEN (ZOLPIDEM TARTRATE) [Concomitant]
  3. WARFARIN (WARFARIN) [Concomitant]
  4. ZOLPIDEM (ZOLPIDEM) [Concomitant]
  5. DEXAMETHASONE (DEXAMETHASONE) [Concomitant]
  6. CALTRATE PLUS D (LEKOVIT CA) [Concomitant]
  7. AMLODIPINE (AMLODIPINE) [Concomitant]
  8. FUROSEMIDE (FUROSEMIDE) [Concomitant]
  9. METFORMIN (METFORMIN) [Concomitant]
  10. PRAVASTATIN (PRAVASTATIN) [Concomitant]
  11. CARVEDILOL (CARVEDILOL) [Concomitant]
  12. OMEPRAZOLE (OMEPRAZOLE) [Concomitant]
  13. LISINOPRIL (LISINOPRIL) [Concomitant]
  14. FERROUS SULFATE (FERROUS SULFATE) [Concomitant]
  15. EPLERENONE (EPLERENONE) [Concomitant]
  16. VITAMINS [Concomitant]
  17. OXYBUTYNIN (OXYBUTYNIN) [Concomitant]
  18. GARLIC (GARLIC) [Concomitant]
  19. COENZYME Q10 (UBIDECARENONE) [Concomitant]
  20. BEE POLLEN (BEE POLLEN) [Concomitant]
  21. FISH OIL (FISH OIL) [Concomitant]
  22. PROLIA (DENOSUMAB) [Concomitant]
  23. VITAMIN D (ERGOCALCIFEROL) [Concomitant]

REACTIONS (7)
  - Insomnia [None]
  - Dysgeusia [None]
  - Protein total increased [None]
  - Platelet count decreased [None]
  - Fatigue [None]
  - Pain [None]
  - Epistaxis [None]
